FAERS Safety Report 14378469 (Version 1)
Quarter: 2018Q1

REPORT INFORMATION
  Report Type: Report from Study
  Country: None (occurrence: TR)
  Receive Date: 20180111
  Receipt Date: 20180111
  Transmission Date: 20180509
  Serious: Yes (Hospitalization)
  Sender: FDA-Public Use
  Company Number: TR-ABBVIE-17K-161-2191075-00

PATIENT
  Age: 58 Year
  Sex: Female
  Weight: 65 kg

DRUGS (9)
  1. FOLBIOL [Concomitant]
     Active Substance: FOLIC ACID
     Indication: BLOOD HOMOCYSTEINE INCREASED
     Route: 048
     Dates: start: 20171208
  2. MADOPAR HBS [Concomitant]
     Active Substance: BENSERAZIDE HYDROCHLORIDE\LEVODOPA
     Indication: PARKINSON^S DISEASE
     Route: 048
     Dates: start: 201711, end: 20171207
  3. MADOPAR HBS [Concomitant]
     Active Substance: BENSERAZIDE HYDROCHLORIDE\LEVODOPA
     Dosage: 1X2
     Route: 048
     Dates: start: 20171207
  4. BENEXOL [Concomitant]
     Active Substance: CYANOCOBALAMIN\PYRIDOXINE\THIAMINE
     Indication: BLOOD HOMOCYSTEINE INCREASED
     Route: 048
     Dates: start: 20171208
  5. GERALGINE-K [Concomitant]
     Indication: ARTHRALGIA
     Route: 048
     Dates: start: 20171207
  6. LEVOTIRON [Concomitant]
     Active Substance: LEVOTHYROXINE SODIUM
     Indication: HYPOTHYROIDISM
     Route: 048
     Dates: start: 20171208
  7. DUODOPA [Suspect]
     Active Substance: CARBIDOPA\LEVODOPA
     Indication: PARKINSON^S DISEASE
     Dosage: MORNING DOSE: 4.00 ML?CONTINUOUS DOSE: 3.00 ML?EXTRA DOSE: 1.00 ML
     Route: 050
     Dates: start: 20171207
  8. PK-MERZ [Concomitant]
     Active Substance: AMANTADINE
     Route: 048
     Dates: start: 20171208
  9. PK-MERZ [Concomitant]
     Active Substance: AMANTADINE
     Indication: PARKINSON^S DISEASE
     Route: 048
     Dates: start: 2011, end: 20171207

REACTIONS (3)
  - C-reactive protein increased [Recovered/Resolved]
  - Stoma site infection [Recovered/Resolved]
  - Stoma site discharge [Recovered/Resolved]

NARRATIVE: CASE EVENT DATE: 20171212
